FAERS Safety Report 8359252-8 (Version None)
Quarter: 2012Q1

REPORT INFORMATION
  Report Type: 
  Country: None (occurrence: None)
  Receive Date: 20111004
  Receipt Date: 20110714
  Transmission Date: 20120608
  Serious: No
  Sender: FDA-Public Use
  Company Number: 2011IP000127

PATIENT
  Age: 56 Year
  Sex: Female

DRUGS (1)
  1. BEPREVE [Suspect]
     Indication: EYE PRURITUS
     Dosage: 1 GTT; BID; OPH
     Route: 047
     Dates: start: 20110705, end: 20110705

REACTIONS (1)
  - VISION BLURRED [None]
